FAERS Safety Report 4576270-6 (Version None)
Quarter: 2005Q1

REPORT INFORMATION
  Report Type: 
  Country: None (occurrence: None)
  Receive Date: 20050119
  Receipt Date: 20021226
  Transmission Date: 20050727
  Serious: Yes (Other)
  Sender: FDA-Public Use
  Company Number: A03200201614

PATIENT
  Age: 52 Year
  Sex: Female
  Weight: 61.2356 kg

DRUGS (7)
  1. PLAVIX [Suspect]
     Indication: CEREBROVASCULAR ACCIDENT
     Dosage: 75 MG QD - ORAL
     Route: 048
     Dates: start: 20021223, end: 20021229
  2. PLAVIX [Suspect]
     Indication: TRANSIENT ISCHAEMIC ATTACK
     Dosage: 75 MG QD - ORAL
     Route: 048
     Dates: start: 20021223, end: 20021229
  3. CARBAMAZEPINE [Concomitant]
  4. LOSARTAN POTASSIUM [Concomitant]
  5. CIMETIDINE [Concomitant]
  6. LEVOTHYROXINE SODIUM [Concomitant]
  7. FLUOXETINE HCL [Concomitant]

REACTIONS (8)
  - COUGH [None]
  - FATIGUE [None]
  - LETHARGY [None]
  - NASAL CONGESTION [None]
  - OROPHARYNGEAL SWELLING [None]
  - RASH MACULO-PAPULAR [None]
  - SNEEZING [None]
  - SWELLING FACE [None]
